FAERS Safety Report 5194333-1 (Version None)
Quarter: 2006Q4

REPORT INFORMATION
  Report Type: 
  Country: None (occurrence: None)
  Receive Date: 20061228
  Receipt Date: 20061115
  Transmission Date: 20070319
  Serious: Yes (Other)
  Sender: FDA-Public Use
  Company Number: US-SHR-US-2006-035611

PATIENT
  Age: 61 Year
  Sex: Female
  Weight: 95.238 kg

DRUGS (3)
  1. BETASERON [Suspect]
     Dosage: 8 MIU, EVERY 2D
     Route: 058
     Dates: start: 19980812
  2. SYNTHROID [Concomitant]
     Indication: HYPOTHYROIDISM
  3. CORTICOSTEROIDS [Concomitant]

REACTIONS (12)
  - ADRENAL INSUFFICIENCY [None]
  - ATRIAL FIBRILLATION [None]
  - BLOOD GLUCOSE INCREASED [None]
  - DIABETES MELLITUS [None]
  - FATIGUE [None]
  - HYPOTHYROIDISM [None]
  - LIVER FUNCTION TEST ABNORMAL [None]
  - MULTIPLE SCLEROSIS [None]
  - PULMONARY FIBROSIS [None]
  - RELAPSING-REMITTING MULTIPLE SCLEROSIS [None]
  - THIRST [None]
  - WEIGHT INCREASED [None]
